FAERS Safety Report 9734276 (Version 2)
Quarter: 2013Q4

REPORT INFORMATION
  Report Type: Report from Study
  Country: AU (occurrence: AU)
  Receive Date: 20131205
  Receipt Date: 20131205
  Transmission Date: 20140711
  Serious: Yes (Other)
  Sender: FDA-Public Use
  Company Number: AU-ROCHE-1269275

PATIENT
  Sex: Female
  Weight: 65 kg

DRUGS (2)
  1. AVASTIN [Suspect]
     Indication: COLORECTAL CANCER METASTATIC
     Route: 065
     Dates: start: 20130703
  2. AVASTIN [Suspect]
     Route: 065
     Dates: end: 20131121

REACTIONS (2)
  - Disease progression [Unknown]
  - Weight decreased [Unknown]
